FAERS Safety Report 4607290-0 (Version None)
Quarter: 2005Q1

REPORT INFORMATION
  Report Type: 
  Country: None (occurrence: None)
  Receive Date: 20050311
  Receipt Date: 20050311
  Transmission Date: 20050727
  Serious: Yes (Disabling)
  Sender: FDA-Public Use
  Company Number: None

PATIENT
  Age: 56 Year
  Sex: Male
  Weight: 117.9352 kg

DRUGS (1)
  1. PRAVACHOL [Suspect]
     Indication: ELECTROMYOGRAM
     Dosage: 1 PER DAY
     Dates: start: 19900102, end: 20050214

REACTIONS (3)
  - DIFFICULTY IN WALKING [None]
  - NEUROPATHY [None]
  - PAIN [None]
